FAERS Safety Report 7714731-9 (Version None)
Quarter: 2011Q3

REPORT INFORMATION
  Report Type: 
  Country: None (occurrence: None)
  Receive Date: 20110804
  Receipt Date: 20101116
  Transmission Date: 20111222
  Serious: Yes (Hospitalization)
  Sender: FDA-Public Use
  Company Number: DSU-2010-06272

PATIENT
  Sex: Male

DRUGS (1)
  1. BENICAR HCT [Suspect]
     Indication: PRODUCT USED FOR UNKNOWN INDICATION
     Dosage: 20/12.5MG (QD),PER ORAL
     Route: 048
     Dates: start: 20100101, end: 20100101

REACTIONS (1)
  - BLOOD CREATININE INCREASED [None]
